FAERS Safety Report 5428896-5 (Version None)
Quarter: 2007Q3

REPORT INFORMATION
  Report Type: 
  Country: None (occurrence: None)
  Receive Date: 20070829
  Receipt Date: 20070823
  Transmission Date: 20080115
  Serious: Yes (Other)
  Sender: FDA-Public Use
  Company Number: US-BAYER-200712715BCC

PATIENT
  Age: 66 Year
  Sex: Female

DRUGS (3)
  1. ALEVE [Suspect]
     Indication: ARTHRITIS
     Route: 048
     Dates: start: 20061122
  2. AMBIEN [Suspect]
     Indication: SLEEP DISORDER
     Dates: start: 20061122
  3. PROZAC [Suspect]
     Indication: DEPRESSION
     Dates: start: 20061122

REACTIONS (3)
  - DRUG TOXICITY [None]
  - PARASOMNIA [None]
  - ROAD TRAFFIC ACCIDENT [None]
